FAERS Safety Report 25860465 (Version 3)
Quarter: 2025Q4

REPORT INFORMATION
  Report Type: Report from Study
  Country: US (occurrence: US)
  Receive Date: 20250929
  Receipt Date: 20251231
  Transmission Date: 20260117
  Serious: No
  Sender: PFIZER
  Company Number: US-PFIZER INC-PV202500115788

PATIENT
  Age: 39 Year
  Sex: Female

DRUGS (1)
  1. IBRANCE [Suspect]
     Active Substance: PALBOCICLIB
     Indication: Breast cancer female
     Dosage: 125 MG, CYCLIC

REACTIONS (6)
  - Pain [Recovered/Resolved]
  - Sluggishness [Unknown]
  - Headache [Recovered/Resolved]
  - Fatigue [Unknown]
  - Decreased appetite [Recovered/Resolved]
  - Product dose omission in error [Unknown]
